FAERS Safety Report 10255763 (Version 1)
Quarter: 2014Q2

REPORT INFORMATION
  Report Type: Spontaneous
  Country: US (occurrence: None)
  Receive Date: 20140522
  Receipt Date: 20140522
  Transmission Date: 20141212
  Serious: No
  Sender: FDA-Public Use
  Company Number: 1000054020

PATIENT
  Age: 67 Year
  Sex: Female

DRUGS (6)
  1. TUDORZA PRESSAIR (ACLIDINIUM BROMIDE) (400 MICROGRAM, POWDER) [Suspect]
     Indication: CHRONIC OBSTRUCTIVE PULMONARY DISEASE
     Dosage: 800 UG (400 UG, 2 IN 1 D)
     Route: 055
     Dates: start: 20140107
  2. XOPENEX (VOSALBUTAMOL HYDROCHLORIDE) [Concomitant]
  3. HYDROXYUREA (HYDROXYCARBAMIDE) [Concomitant]
  4. ASPIRIN (ACETYLSALICYLIC ACID) [Concomitant]
  5. LEVOTHYROXINE (LEVOTHROXINE SODIUM) [Concomitant]
  6. EFFIENT (PRASUGREL HYDROCHLORIDE) [Concomitant]

REACTIONS (2)
  - Nausea [None]
  - Muscular weakness [None]
